FAERS Safety Report 5349398-0 (Version None)
Quarter: 2007Q2

REPORT INFORMATION
  Report Type: 
  Country: None (occurrence: None)
  Receive Date: 20070504
  Receipt Date: 20060710
  Transmission Date: 20071010
  Serious: Yes (Other)
  Sender: FDA-Public Use
  Company Number: PHEH2006US05557

PATIENT
  Age: 58 Year
  Sex: Female
  Weight: 100.7 kg

DRUGS (8)
  1. DIOVAN HCT [Suspect]
     Indication: HYPERTENSION
     Dosage: 160 MG VAL/12.5 MG HCT, QD, ORAL
     Route: 048
     Dates: start: 20060221, end: 20060427
  2. DIOVAN HCT [Suspect]
     Indication: HYPERTENSION
     Dosage: 160 MG VAL/12.5 MG HCT, QD, ORAL
     Route: 048
     Dates: start: 20060321, end: 20060427
  3. TOPROL-XL [Concomitant]
  4. LASIX [Concomitant]
  5. POTASSIUM (POTASSIUM) [Concomitant]
  6. LEVOXYL [Concomitant]
  7. EFFEXOR [Concomitant]
  8. LAMICTAL [Concomitant]

REACTIONS (1)
  - CONVULSION [None]
